FAERS Safety Report 4539351-9 (Version None)
Quarter: 2004Q4

REPORT INFORMATION
  Report Type: 
  Country: None (occurrence: None)
  Receive Date: 20041223
  Receipt Date: 20041210
  Transmission Date: 20050328
  Serious: Yes (Hospitalization)
  Sender: FDA-Public Use
  Company Number: 2004-BP-10717BP(2)

PATIENT
  Age: 79 Year
  Sex: Female
  Weight: 81.2 kg

DRUGS (6)
  1. MOBIC [Suspect]
     Indication: OSTEOARTHRITIS
     Dosage: 7.5 MG (7.5 MG, OD), PO
     Route: 048
     Dates: start: 20040129, end: 20041020
  2. SYNTHROID [Concomitant]
  3. PRAVACHOL [Concomitant]
  4. LISINOPRIL [Concomitant]
  5. HYDROCHLOROTHIAZIDE (HCTZ) (HYDROCHLOROTHIAZIDE) [Concomitant]
  6. ALBUTEROL [Concomitant]

REACTIONS (5)
  - GASTRIC ULCER [None]
  - HAEMATOCRIT DECREASED [None]
  - HAEMOGLOBIN DECREASED [None]
  - LOSS OF CONSCIOUSNESS [None]
  - UPPER GASTROINTESTINAL HAEMORRHAGE [None]
